FAERS Safety Report 24266072 (Version 1)
Quarter: 2024Q3

REPORT INFORMATION
  Report Type: Spontaneous
  Country: US (occurrence: None)
  Receive Date: 20240830
  Receipt Date: 20240830
  Transmission Date: 20241016
  Serious: No
  Sender: AXSOME THERAPEUTICS
  Company Number: US-ARIS GLOBAL-AXS202405-000708

PATIENT
  Age: 52 Year
  Sex: Female

DRUGS (1)
  1. AUVELITY [Suspect]
     Active Substance: BUPROPION HYDROCHLORIDE\DEXTROMETHORPHAN HYDROBROMIDE
     Indication: Major depression
     Route: 048
     Dates: start: 202402, end: 202405

REACTIONS (3)
  - Tremor [Unknown]
  - Tic [Unknown]
  - Extrapyramidal disorder [Recovering/Resolving]

NARRATIVE: CASE EVENT DATE: 20240101
